FAERS Safety Report 20062335 (Version 2)
Quarter: 2021Q4

REPORT INFORMATION
  Report Type: Spontaneous
  Country: US (occurrence: US)
  Receive Date: 20211112
  Receipt Date: 20211222
  Transmission Date: 20220303
  Serious: Yes (Death, Hospitalization, Other)
  Sender: FDA-Public Use
  Company Number: US-VERTEX PHARMACEUTICALS-2021-017476

PATIENT
  Sex: Female

DRUGS (11)
  1. TRIKAFTA [Suspect]
     Active Substance: ELEXACAFTOR\IVACAFTOR\TEZACAFTOR
     Indication: Cystic fibrosis
     Dosage: 2 ORANGE TABS IN MORNING; 1 BLUE TAB IN EVENING
     Route: 048
     Dates: start: 20191115, end: 20210812
  2. AZITHROMYCIN [Concomitant]
     Active Substance: AZITHROMYCIN
     Dosage: UNK
     Dates: end: 202108
  3. VANCOMYCIN [Concomitant]
     Active Substance: VANCOMYCIN
  4. CASPOFUNGIN [Concomitant]
     Active Substance: CASPOFUNGIN
  5. METOCLOPRAMIDE [Concomitant]
     Active Substance: METOCLOPRAMIDE
  6. PANTOPRAZOLE [Concomitant]
     Active Substance: PANTOPRAZOLE
  7. OCTREOTIDE [Concomitant]
     Active Substance: OCTREOTIDE
  8. MEROPENEM [Concomitant]
     Active Substance: MEROPENEM
  9. CEFTRIAXONE [Concomitant]
     Active Substance: CEFTRIAXONE
  10. LASIX [Concomitant]
     Active Substance: FUROSEMIDE
  11. LACTULOSE [Concomitant]
     Active Substance: LACTULOSE

REACTIONS (4)
  - Acute hepatic failure [Fatal]
  - Respiratory disorder [Unknown]
  - Hepatic encephalopathy [Unknown]
  - Liver function test increased [Unknown]

NARRATIVE: CASE EVENT DATE: 20210101
